FAERS Safety Report 7912934-1 (Version None)
Quarter: 2011Q4

REPORT INFORMATION
  Report Type: 
  Country: None (occurrence: None)
  Receive Date: 20111114
  Receipt Date: 20111109
  Transmission Date: 20120403
  Serious: Yes (Hospitalization)
  Sender: FDA-Public Use
  Company Number: US-B.I. PHARMACEUTICALS,INC./RIDGEFIELD-2011-BP-18518BP

PATIENT
  Sex: Male

DRUGS (6)
  1. LASIX [Concomitant]
     Dosage: 40 MG
  2. ASPIRIN [Concomitant]
     Dosage: 325 MG
  3. SIMVASTATIN [Concomitant]
     Dosage: 40 MG
  4. LISINOPRIL [Concomitant]
     Dosage: 5 MG
  5. ALDACTONE [Concomitant]
     Dosage: 12.5 MG
  6. PRADAXA [Suspect]
     Indication: ATRIAL FIBRILLATION
     Dosage: 300 MG
     Dates: start: 20110301, end: 20110718

REACTIONS (8)
  - ASTHENIA [None]
  - RENAL FAILURE ACUTE [None]
  - ANAEMIA [None]
  - HYPOTENSION [None]
  - BACK PAIN [None]
  - SHOCK [None]
  - DYSPNOEA [None]
  - RECTAL HAEMORRHAGE [None]
